FAERS Safety Report 16128341 (Version 1)
Quarter: 2019Q1

REPORT INFORMATION
  Report Type: Spontaneous
  Country: FR (occurrence: FR)
  Receive Date: 20190328
  Receipt Date: 20190328
  Transmission Date: 20190418
  Serious: Yes (Hospitalization)
  Sender: FDA-Public Use
  Company Number: FR-TEVA-2019-FR-1030358

PATIENT
  Sex: Male
  Weight: 61 kg

DRUGS (9)
  1. KARDEGIC [Concomitant]
     Active Substance: ASPIRIN DL-LYSINE
     Indication: PERIPHERAL ARTERIAL OCCLUSIVE DISEASE
     Dosage: 160 MILLIGRAM DAILY;
     Route: 048
  2. CISPLATINE [Suspect]
     Active Substance: CISPLATIN
     Indication: GENITAL CANCER MALE
     Route: 041
     Dates: start: 20160409, end: 20160630
  3. IFOSFAMIDE. [Suspect]
     Active Substance: IFOSFAMIDE
     Indication: GENITAL CANCER MALE
     Route: 041
     Dates: start: 20160409, end: 20160630
  4. IMUREL [Concomitant]
     Active Substance: AZATHIOPRINE SODIUM
     Indication: INTERSTITIAL LUNG DISEASE
     Dosage: 100 MILLIGRAM DAILY;
     Route: 048
     Dates: start: 20170710, end: 20180205
  5. PACLITAXEL. [Suspect]
     Active Substance: PACLITAXEL
     Indication: GENITAL CANCER MALE
     Route: 041
     Dates: start: 20160409, end: 20160630
  6. RITUXIMAB ((MAMMIFERE/HAMSTER/CELLULES CHO)) [Concomitant]
     Active Substance: RITUXIMAB
     Dosage: 1G PER CURE
     Route: 041
     Dates: start: 20180728, end: 20180813
  7. SOLUPRED [Concomitant]
     Indication: INTERSTITIAL LUNG DISEASE
     Dosage: 30 MILLIGRAM DAILY;
     Route: 048
     Dates: start: 20170119
  8. TAHOR [Concomitant]
     Active Substance: ATORVASTATIN CALCIUM
     Indication: DYSLIPIDAEMIA
     Dosage: 10 MILLIGRAM DAILY;
     Route: 048
  9. LASILIX [Concomitant]
     Active Substance: FUROSEMIDE
     Indication: OEDEMA PERIPHERAL
     Dosage: 20 MILLIGRAM DAILY;
     Route: 048
     Dates: start: 20180730

REACTIONS (2)
  - Raynaud^s phenomenon [Not Recovered/Not Resolved]
  - Interstitial lung disease [Not Recovered/Not Resolved]

NARRATIVE: CASE EVENT DATE: 20160601
